FAERS Safety Report 9633919 (Version 2)
Quarter: 2013Q4

REPORT INFORMATION
  Report Type: Report from Study
  Country: US (occurrence: US)
  Receive Date: 20131021
  Receipt Date: 20131023
  Transmission Date: 20140711
  Serious: Yes (Hospitalization)
  Sender: FDA-Public Use
  Company Number: US-JNJFOC-20131010918

PATIENT
  Age: 73 Year
  Sex: Male
  Weight: 82.2 kg

DRUGS (25)
  1. ABIRATERONE ACETATE [Suspect]
     Indication: PROSTATE CANCER METASTATIC
     Route: 048
     Dates: start: 20120106, end: 20130103
  2. ABIRATERONE ACETATE [Suspect]
     Indication: PROSTATE CANCER METASTATIC
     Route: 048
     Dates: start: 20130109, end: 20130717
  3. ABIRATERONE ACETATE [Suspect]
     Indication: PROSTATE CANCER METASTATIC
     Route: 048
     Dates: start: 20130718
  4. PREDNISONE [Suspect]
     Indication: PROSTATE CANCER METASTATIC
     Route: 048
     Dates: start: 20120106, end: 20130523
  5. PREDNISONE [Suspect]
     Indication: PROSTATE CANCER METASTATIC
     Route: 048
     Dates: start: 20130524
  6. COZAAR [Concomitant]
     Indication: HYPERTENSION
     Route: 048
     Dates: start: 2007
  7. GARLIC [Concomitant]
     Indication: NUTRITIONAL SUPPLEMENTATION
     Route: 048
     Dates: start: 2007
  8. DILTIAZEM [Concomitant]
     Indication: HYPERTENSION
     Route: 048
     Dates: start: 20120101
  9. GINSENG [Concomitant]
     Indication: NUTRITIONAL SUPPLEMENTATION
     Route: 048
     Dates: start: 2007
  10. MULTIVITAMINS [Concomitant]
     Indication: NUTRITIONAL SUPPLEMENTATION
     Route: 048
     Dates: start: 2007
  11. OMEGA 3 OIL [Concomitant]
     Indication: NUTRITIONAL SUPPLEMENTATION
     Route: 048
     Dates: start: 2007
  12. ANTIINFLAMMATORY/ANTIRHEUMATIC PRODUCTS [Concomitant]
     Indication: NUTRITIONAL SUPPLEMENTATION
     Route: 048
     Dates: start: 2007
  13. VITAMINE  E [Concomitant]
     Indication: NUTRITIONAL SUPPLEMENTATION
     Route: 048
     Dates: start: 2007
  14. GLUTAMIC ACID [Concomitant]
     Indication: MUSCULAR WEAKNESS
     Route: 048
     Dates: start: 201203
  15. ISOPURE WHEY PROTEIN [Concomitant]
     Indication: MEDICAL DIET
     Route: 048
     Dates: start: 201203
  16. AMINO ACIDS,INCL COMBINATIONS WITH POLYPEPTID [Concomitant]
     Indication: MEDICAL DIET
     Route: 048
     Dates: start: 201203
  17. ASPIRIN [Concomitant]
     Indication: CARDIOVASCULAR EVENT PROPHYLAXIS
     Route: 048
     Dates: start: 20120320
  18. LYCOPENE [Concomitant]
     Indication: MEDICAL DIET
     Route: 048
     Dates: start: 20120816
  19. VITAMIN C [Concomitant]
     Indication: MEDICAL DIET
     Route: 048
     Dates: start: 20120816
  20. PANTOPRAZOLE [Concomitant]
     Indication: GASTROINTESTINAL DISORDER THERAPY
     Route: 048
     Dates: start: 20120426
  21. PLAVIX [Concomitant]
     Indication: CARDIOVASCULAR EVENT PROPHYLAXIS
     Route: 048
     Dates: start: 20120426
  22. POTASSIUM SODIUM HYDROGEN CITRATE [Concomitant]
     Indication: HYPOKALAEMIA
     Route: 048
     Dates: start: 20120523
  23. COLACE [Concomitant]
     Indication: CONSTIPATION
     Route: 048
     Dates: start: 20120816
  24. HYDROCHLOROTHIAZIDE [Concomitant]
     Indication: HYPERTENSION
     Route: 048
     Dates: start: 20120202
  25. GINGKO BILOBA (CHINESE HERB) [Concomitant]
     Indication: NUTRITIONAL SUPPLEMENTATION
     Route: 048
     Dates: start: 2007

REACTIONS (1)
  - Meniere^s disease [Recovered/Resolved]
